FAERS Safety Report 21027796 (Version 1)
Quarter: 2022Q2

REPORT INFORMATION
  Report Type: Spontaneous
  Country: US (occurrence: None)
  Receive Date: 20220630
  Receipt Date: 20220630
  Transmission Date: 20220721
  Serious: No
  Sender: FDA-Public Use
  Company Number: None

PATIENT
  Age: 68 Year
  Sex: Male

DRUGS (1)
  1. OPSUMIT [Suspect]
     Active Substance: MACITENTAN
     Indication: Pulmonary arterial hypertension
     Dosage: 10MG DAILY BY MOUTH?
     Route: 048
     Dates: start: 20191001

REACTIONS (5)
  - Headache [None]
  - Pain in jaw [None]
  - Arthralgia [None]
  - Myalgia [None]
  - Inadequate analgesia [None]

NARRATIVE: CASE EVENT DATE: 20220628
